FAERS Safety Report 7511347-4 (Version None)
Quarter: 2011Q2

REPORT INFORMATION
  Report Type: 
  Country: None (occurrence: None)
  Receive Date: 20110531
  Receipt Date: 20110523
  Transmission Date: 20111010
  Serious: Yes (Hospitalization, Other)
  Sender: FDA-Public Use
  Company Number: US-JNJFOC-20110510745

PATIENT
  Age: 9 Decade
  Sex: Male

DRUGS (3)
  1. UNKNOWN MULTIPLE MEDICATION [Concomitant]
     Route: 065
  2. NUCYNTA [Suspect]
     Indication: PAIN
     Route: 048
     Dates: start: 20101014, end: 20101016
  3. NUCYNTA [Suspect]
     Indication: PERIPHERAL VASCULAR DISORDER
     Route: 048
     Dates: start: 20101014, end: 20101016

REACTIONS (5)
  - VOMITING [None]
  - HEPATIC FAILURE [None]
  - RENAL FAILURE [None]
  - NAUSEA [None]
  - RASH [None]
